FAERS Safety Report 8029297-6 (Version None)
Quarter: 2012Q1

REPORT INFORMATION
  Report Type: 
  Country: None (occurrence: None)
  Receive Date: 20120106
  Receipt Date: 20120102
  Transmission Date: 20120608
  Serious: Yes (Death, Life-Threatening, Other)
  Sender: FDA-Public Use
  Company Number: US-BAYER-2012-001102

PATIENT
  Age: 38 Year
  Sex: Female

DRUGS (1)
  1. PARACETAMOL + DIPHENHYDRAMINE [Suspect]

REACTIONS (11)
  - HYPERTENSION [None]
  - CARDIAC ARREST [None]
  - INTESTINAL PERFORATION [None]
  - TOXICITY TO VARIOUS AGENTS [None]
  - JAUNDICE [None]
  - MYDRIASIS [None]
  - HYPOGLYCAEMIA [None]
  - ENCEPHALOPATHY [None]
  - TACHYCARDIA [None]
  - GASTROINTESTINAL NECROSIS [None]
  - HYPOTENSION [None]
